FAERS Safety Report 10945349 (Version 2)
Quarter: 2015Q2

REPORT INFORMATION
  Report Type: Spontaneous
  Country: US (occurrence: US)
  Receive Date: 20150323
  Receipt Date: 20150430
  Transmission Date: 20150821
  Serious: Yes (Other)
  Sender: FDA-Public Use
  Company Number: US-PFIZER INC-2015096290

PATIENT
  Age: 79 Year
  Sex: Female

DRUGS (1)
  1. GLUCOTROL [Suspect]
     Active Substance: GLIPIZIDE
     Indication: DIABETES MELLITUS
     Dosage: 2.5 MG, 2X/DAY
     Dates: start: 2003

REACTIONS (3)
  - Constipation [Unknown]
  - Nausea [Unknown]
  - Hearing impaired [Not Recovered/Not Resolved]
